FAERS Safety Report 11569530 (Version 1)
Quarter: 2015Q3

REPORT INFORMATION
  Report Type: Spontaneous
  Country: US (occurrence: US)
  Receive Date: 20150929
  Receipt Date: 20150929
  Transmission Date: 20151125
  Serious: Yes (Hospitalization, Other)
  Sender: FDA-Public Use
  Company Number: US-ABBVIE-15P-163-1469638-00

PATIENT
  Sex: Male

DRUGS (3)
  1. AZATHIOPRINE. [Suspect]
     Active Substance: AZATHIOPRINE
     Indication: PRODUCT USED FOR UNKNOWN INDICATION
     Route: 065
  2. HUMIRA [Suspect]
     Active Substance: ADALIMUMAB
     Indication: PRODUCT USED FOR UNKNOWN INDICATION
     Route: 058
  3. METHOTREXATE [Suspect]
     Active Substance: METHOTREXATE
     Indication: PRODUCT USED FOR UNKNOWN INDICATION
     Route: 065

REACTIONS (22)
  - Hospitalisation [Unknown]
  - Abnormal faeces [Unknown]
  - Mood altered [Unknown]
  - Muscle spasms [Unknown]
  - Hepatitis [Unknown]
  - Abscess [Unknown]
  - Arthralgia [Unknown]
  - Drug ineffective [Unknown]
  - Fatigue [Unknown]
  - Pulmonary mass [Unknown]
  - Frequent bowel movements [Unknown]
  - Pancreatic disorder [Unknown]
  - Pain [Unknown]
  - Mass [Unknown]
  - Procedural complication [Unknown]
  - Anastomotic ulcer [Unknown]
  - Face oedema [Unknown]
  - Agitation [Unknown]
  - Mental disorder [Unknown]
  - Pulmonary thrombosis [Unknown]
  - Pneumonia [Unknown]
  - Ileectomy [Unknown]
